FAERS Safety Report 5090094-5 (Version None)
Quarter: 2006Q3

REPORT INFORMATION
  Report Type: 
  Country: None (occurrence: None)
  Receive Date: 20060828
  Receipt Date: 20060823
  Transmission Date: 20061208
  Serious: Yes (Hospitalization)
  Sender: FDA-Public Use
  Company Number: US-JNJFOC-20060500370

PATIENT
  Sex: Female

DRUGS (6)
  1. REMICADE [Suspect]
     Route: 042
  2. REMICADE [Suspect]
     Indication: CROHN'S DISEASE
     Dosage: TWO INFUSIONS ON UNSPECIFIED DATES.
     Route: 042
  3. ALLOPURINOL [Concomitant]
  4. PREDNISONE TAB [Concomitant]
  5. BENADRYL [Concomitant]
  6. AZATHIOPRINE [Concomitant]

REACTIONS (7)
  - ABASIA [None]
  - ASTHENIA [None]
  - DYSARTHRIA [None]
  - FLUSHING [None]
  - MUSCULAR WEAKNESS [None]
  - PAIN IN EXTREMITY [None]
  - WALKING DISABILITY [None]
